FAERS Safety Report 7002689-X (Version None)
Quarter: 2010Q3

REPORT INFORMATION
  Report Type: 
  Country: None (occurrence: None)
  Receive Date: 20100920
  Receipt Date: 20100915
  Transmission Date: 20110219
  Serious: Yes (Life-Threatening, Hospitalization, Other)
  Sender: FDA-Public Use
  Company Number: CH-WYE-G06608910

PATIENT
  Age: 71 Year
  Sex: Female

DRUGS (18)
  1. ENBREL [Suspect]
     Indication: RHEUMATOID ARTHRITIS
     Dosage: 25 MG TWICE WEEKLY THEN REDUCED TO 25 MG WEEKLY ON 07-JUN OF AN UNSPECIFIED YEAR
     Route: 058
     Dates: start: 20030520, end: 20080101
  2. FOLVITE [Concomitant]
     Dates: start: 20080301
  3. METHOTREXATE [Suspect]
     Indication: RHEUMATOID ARTHRITIS
     Dosage: STARTED ABOUT 10 YEARS AGO, 20 OR 25 MG WEEKLY
     Route: 048
  4. MARCUMAR [Concomitant]
     Dosage: AS REQUIRED
  5. COZAAR [Concomitant]
     Dates: start: 20080301
  6. CONCOR PLUS [Concomitant]
     Dosage: UNKNOWN DOSE TWICE DAILY
  7. PRAVASTATIN SODIUM [Concomitant]
  8. OMEPRAZOLE [Concomitant]
  9. TOREM [Concomitant]
     Dosage: UNTIL 07-MAR-2008 10 MG DAILY, THEN INCREASED TO 20 MG DAILY
  10. ACETAMINOPHEN [Concomitant]
     Dosage: UNKNOWN START DATE UNTIL 07-MAR-2008 500 MG 4 TIMES DAILY, THEN AS NECESSARY, UP TO 4 G DAILY
  11. MORPHINE [Concomitant]
     Dosage: 9 MG, MAXIMAL 4 HOURLY FROM THE RESERVE, STOPPED IN MAR-2008
     Route: 058
  12. ASPEGIC 1000 [Concomitant]
     Dosage: STOPPED IN MAR-2008, 100 MG ONCE DAILY
  13. NEXIUM [Concomitant]
  14. PARALIN [Concomitant]
     Dosage: 20 ML 3 TIMES DAILY, STOPPED IN MAR-2008
  15. HEPARIN [Concomitant]
     Dosage: STOPPED IN MAR-2008, 5000 I.E. / 24 HRS
     Route: 042
  16. CORDARONE [Suspect]
     Indication: ATRIAL FIBRILLATION
     Dosage: IN MAR-2008 150 MG, THEN GIVEN IN MAR-2010, DOSE AND FREQUENCY UNKNOWN
  17. CORDARONE [Suspect]
     Indication: VENTRICULAR TACHYCARDIA
  18. CORDARONE [Suspect]
     Indication: CARDIAC FAILURE

REACTIONS (24)
  - ATRIAL FIBRILLATION [None]
  - ATRIAL FLUTTER [None]
  - BUNDLE BRANCH BLOCK LEFT [None]
  - BUNDLE BRANCH BLOCK RIGHT [None]
  - CARDIAC FAILURE [None]
  - CARDIOGENIC SHOCK [None]
  - CARDIOMYOPATHY [None]
  - CONDITION AGGRAVATED [None]
  - CONGESTIVE CARDIOMYOPATHY [None]
  - DECREASED APPETITE [None]
  - ELECTROCARDIOGRAM QT PROLONGED [None]
  - FALL [None]
  - GENERAL PHYSICAL HEALTH DETERIORATION [None]
  - HYPERHIDROSIS [None]
  - MITRAL VALVE INCOMPETENCE [None]
  - NAUSEA [None]
  - NEPHROLITHIASIS [None]
  - PROSTHESIS IMPLANTATION [None]
  - RHEUMATOID ARTHRITIS [None]
  - STRESS CARDIOMYOPATHY [None]
  - VENTRICULAR EXTRASYSTOLES [None]
  - VENTRICULAR TACHYCARDIA [None]
  - VOMITING [None]
  - WEIGHT INCREASED [None]
